FAERS Safety Report 25641862 (Version 2)
Quarter: 2025Q3

REPORT INFORMATION
  Report Type: Spontaneous
  Country: US (occurrence: US)
  Receive Date: 20250804
  Receipt Date: 20250812
  Transmission Date: 20251021
  Serious: Yes (Hospitalization)
  Sender: AMGEN
  Company Number: US-AMGEN-USASP2025153868

PATIENT
  Sex: Female

DRUGS (1)
  1. PROLIA [Suspect]
     Active Substance: DENOSUMAB
     Indication: Fibrous dysplasia of bone
     Route: 065

REACTIONS (3)
  - Hypercalcaemia [Unknown]
  - Off label use [Unknown]
  - Therapy interrupted [Unknown]
